FAERS Safety Report 16671250 (Version 1)
Quarter: 2019Q3

REPORT INFORMATION
  Report Type: Spontaneous
  Country: FR (occurrence: FR)
  Receive Date: 20190805
  Receipt Date: 20190805
  Transmission Date: 20191004
  Serious: Yes (Other)
  Sender: FDA-Public Use
  Company Number: FR-SUN PHARMACEUTICAL INDUSTRIES LTD-2019RR-216323

PATIENT
  Age: 15 Year
  Sex: Female

DRUGS (1)
  1. LEVOCETIRIZINE [Suspect]
     Active Substance: LEVOCETIRIZINE
     Indication: PRODUCT USED FOR UNKNOWN INDICATION
     Dosage: 0.67 MILLIGRAM/KILOGRAM (ALLEGED INGESTION OF SEVEN 5MG TABLETS)
     Route: 048

REACTIONS (4)
  - Intentional product misuse [Unknown]
  - Suicide attempt [Unknown]
  - Hallucination [Unknown]
  - Delirium [Unknown]
